FAERS Safety Report 10603193 (Version 1)
Quarter: 2014Q4

REPORT INFORMATION
  Report Type: Spontaneous
  Country: BR (occurrence: BR)
  Receive Date: 20141124
  Receipt Date: 20141124
  Transmission Date: 20150529
  Serious: Yes (Other)
  Sender: FDA-Public Use
  Company Number: BR-PFIZER INC-2014317874

PATIENT
  Age: 41 Year
  Sex: Female
  Weight: 78 kg

DRUGS (9)
  1. CELEBRA [Suspect]
     Active Substance: CELECOXIB
     Indication: TENDON DISORDER
     Dosage: UNSPECIFIED DOSE, 2X/DAY
     Route: 048
     Dates: start: 2013
  2. PURAN [Concomitant]
     Active Substance: LEVOTHYROXINE SODIUM
     Indication: THYROID DISORDER
  3. DONAREN [Concomitant]
     Active Substance: TRAZODONE HYDROCHLORIDE
     Indication: RELAXATION THERAPY
     Dosage: UNSPECIFIED DOSE, UNTIL 2X/DAY
     Dates: start: 201405, end: 201405
  4. CELEBRA [Suspect]
     Active Substance: CELECOXIB
     Indication: BONE DISORDER
  5. SERTRALINE [Concomitant]
     Active Substance: SERTRALINE HYDROCHLORIDE
     Indication: DEPRESSION
     Dosage: 1 DAILY (AS REPORTED)
     Dates: start: 2014
  6. CARBOLITHIUM [Concomitant]
     Active Substance: LITHIUM CARBONATE
     Indication: BIPOLAR DISORDER
     Dosage: UNSPECIFIED DOSE, 3X/DAY
     Dates: start: 2009
  7. DONAREN [Concomitant]
     Active Substance: TRAZODONE HYDROCHLORIDE
     Indication: SLEEP DISORDER
  8. FRONTAL XR [Concomitant]
     Active Substance: ALPRAZOLAM
     Indication: RELAXATION THERAPY
     Dosage: UNSPECIFIED DOSE, 1X/DAY
     Dates: start: 201405, end: 201405
  9. TRAMADOL [Concomitant]
     Active Substance: TRAMADOL
     Indication: PAIN
     Dosage: UNSPECIFIED DOSE, IN ALTERNATE DAY INTERCALATED WITH THE UNSPECIFIED MEDICATION (CODEIR)

REACTIONS (4)
  - Medication error [Not Recovered/Not Resolved]
  - Limb injury [Unknown]
  - Femur fracture [Unknown]
  - Accident [Unknown]
